FAERS Safety Report 11509880 (Version 1)
Quarter: 2015Q3

REPORT INFORMATION
  Report Type: Spontaneous
  Country: US (occurrence: US)
  Receive Date: 20150915
  Receipt Date: 20150915
  Transmission Date: 20151125
  Serious: No
  Sender: FDA-Public Use
  Company Number: US-JNJFOC-20150505522

PATIENT
  Age: 58 Year
  Sex: Female
  Weight: 68.04 kg

DRUGS (2)
  1. ANTI-INFLAMMATORY MEDICATION [Concomitant]
     Active Substance: UNSPECIFIED INGREDIENT
     Indication: PRODUCT USED FOR UNKNOWN INDICATION
     Route: 065
  2. MOTRIN IB [Suspect]
     Active Substance: IBUPROFEN
     Indication: ARTHRALGIA
     Dosage: 3 IN MORNING AND 3 AT NIGHT
     Route: 048
     Dates: start: 20150502

REACTIONS (2)
  - Off label use [Unknown]
  - Incorrect dose administered [Unknown]
